FAERS Safety Report 6298129-9 (Version None)
Quarter: 2009Q3

REPORT INFORMATION
  Report Type: 
  Country: None (occurrence: None)
  Receive Date: 20090805
  Receipt Date: 20090727
  Transmission Date: 20100115
  Serious: Yes (Hospitalization)
  Sender: FDA-Public Use
  Company Number: GB-ASTRAZENECA-2009SE04593

PATIENT
  Sex: Female

DRUGS (5)
  1. SEROQUEL XR [Suspect]
     Indication: SCHIZOPHRENIA
     Route: 048
  2. SEROQUEL XR [Suspect]
     Route: 048
  3. SEROQUEL XR [Suspect]
     Route: 048
  4. PHENYTOIN SODIUM CAP [Concomitant]
     Indication: EPILEPSY
  5. EPILIM CHRONO [Concomitant]
     Indication: EPILEPSY

REACTIONS (1)
  - BRADYCARDIA [None]
